FAERS Safety Report 9036613 (Version 1)
Quarter: 2013Q1

REPORT INFORMATION
  Report Type: Spontaneous
  Country: US (occurrence: None)
  Receive Date: 20130122
  Receipt Date: 20130122
  Transmission Date: 20140127
  Serious: Yes (Other)
  Sender: FDA-Public Use
  Company Number: None

PATIENT
  Age: 9 Year
  Sex: Male

DRUGS (1)
  1. LUPRON DEPOT [Suspect]
     Indication: SEXUAL DYSFUNCTION
     Route: 030
     Dates: start: 20111122, end: 20121231

REACTIONS (2)
  - Grand mal convulsion [None]
  - Anticonvulsant drug level decreased [None]
